FAERS Safety Report 5689281-4 (Version None)
Quarter: 2008Q1

REPORT INFORMATION
  Report Type: 
  Country: None (occurrence: None)
  Receive Date: 20080331
  Receipt Date: 20080319
  Transmission Date: 20080703
  Serious: Yes (Hospitalization)
  Sender: FDA-Public Use
  Company Number: US-ELI_LILLY_AND_COMPANY-US200802003695

PATIENT
  Sex: Female
  Weight: 49.887 kg

DRUGS (1)
  1. FORTEO [Suspect]
     Indication: OSTEOPOROSIS
     Dosage: 20 UG, DAILY (1/D)
     Dates: start: 20080117, end: 20080201

REACTIONS (4)
  - ASTHENIA [None]
  - PYREXIA [None]
  - VIRAL INFECTION [None]
  - VOMITING [None]
